FAERS Safety Report 6991864-6 (Version None)
Quarter: 2010Q3

REPORT INFORMATION
  Report Type: 
  Country: None (occurrence: None)
  Receive Date: 20100917
  Receipt Date: 20100908
  Transmission Date: 20110219
  Serious: Yes (Other)
  Sender: FDA-Public Use
  Company Number: US-PFIZER INC-2010113940

PATIENT
  Sex: Female

DRUGS (4)
  1. CHANTIX [Suspect]
     Indication: SMOKING CESSATION THERAPY
     Dosage: 0.5 MG, 1X/DAY
     Route: 048
     Dates: start: 20100901, end: 20100901
  2. CHANTIX [Suspect]
     Dosage: 0.5 MG, 2X/DAY
     Route: 048
     Dates: start: 20100901, end: 20100906
  3. LOVASTATIN [Concomitant]
     Indication: BLOOD CHOLESTEROL ABNORMAL
     Dosage: UNK
     Route: 048
  4. FISH OIL [Concomitant]
     Dosage: UNK

REACTIONS (9)
  - ABNORMAL DREAMS [None]
  - AGITATION [None]
  - EYE SWELLING [None]
  - FATIGUE [None]
  - OCULAR HYPERAEMIA [None]
  - PHARYNGEAL OEDEMA [None]
  - SWELLING FACE [None]
  - VISION BLURRED [None]
  - VOMITING [None]
